FAERS Safety Report 9458155 (Version 1)
Quarter: 2013Q3

REPORT INFORMATION
  Report Type: Spontaneous
  Country: US (occurrence: None)
  Receive Date: 20130812
  Receipt Date: 20130812
  Transmission Date: 20140515
  Serious: Yes (Other)
  Sender: FDA-Public Use
  Company Number: None

PATIENT
  Sex: Female

DRUGS (1)
  1. FUROSEMIDE [Suspect]
     Indication: JOINT SWELLING
     Dosage: UP TO 70 MGM B.I.D. ORAL ?SEVERAL MONTHS
     Route: 048

REACTIONS (1)
  - Muscle swelling [None]
